FAERS Safety Report 9395689 (Version 1)
Quarter: 2013Q3

REPORT INFORMATION
  Report Type: Spontaneous
  Country: US (occurrence: US)
  Receive Date: 20130711
  Receipt Date: 20130711
  Transmission Date: 20140515
  Serious: No
  Sender: FDA-Public Use
  Company Number: US-BRISTOL-MYERS SQUIBB COMPANY-18792986

PATIENT
  Age: 70 Year
  Sex: Male
  Weight: 97.3 kg

DRUGS (1)
  1. NULOJIX [Suspect]
     Indication: RENAL TRANSPLANT

REACTIONS (1)
  - Intercepted medication error [Unknown]
